FAERS Safety Report 7232727-0 (Version None)
Quarter: 2011Q1

REPORT INFORMATION
  Report Type: 
  Country: None (occurrence: None)
  Receive Date: 20110119
  Receipt Date: 20110106
  Transmission Date: 20110831
  Serious: Yes (Other)
  Sender: FDA-Public Use
  Company Number: BR-PFIZER INC-BR-WYE-H16181910

PATIENT
  Age: 32 Year
  Sex: Female
  Weight: 64 kg

DRUGS (4)
  1. PRISTIQ [Suspect]
     Indication: DEPRESSION
     Dosage: 50 MG, 2X/DAY
     Route: 048
     Dates: start: 20100401
  2. BUSPAR [Suspect]
     Indication: DECREASED APPETITE
     Dosage: UNK
     Route: 065
     Dates: start: 20100101, end: 20100101
  3. TOPIRAMATE [Concomitant]
     Dosage: UNK
  4. RIVOTRIL [Concomitant]
     Dosage: UNK

REACTIONS (16)
  - URINARY TRACT INFECTION [None]
  - MEMORY IMPAIRMENT [None]
  - PANIC REACTION [None]
  - UNEVALUABLE EVENT [None]
  - SOMNOLENCE [None]
  - FEAR [None]
  - IRRITABILITY [None]
  - HEADACHE [None]
  - WEIGHT DECREASED [None]
  - SUSPICIOUSNESS [None]
  - ALOPECIA [None]
  - DRUG INEFFECTIVE [None]
  - MOOD ALTERED [None]
  - AGGRESSION [None]
  - DECREASED APPETITE [None]
  - IMPULSIVE BEHAVIOUR [None]
